FAERS Safety Report 7970159-8 (Version None)
Quarter: 2011Q4

REPORT INFORMATION
  Report Type: 
  Country: None (occurrence: None)
  Receive Date: 20111212
  Receipt Date: 20111205
  Transmission Date: 20120403
  Serious: Yes (Hospitalization)
  Sender: FDA-Public Use
  Company Number: US-SANOFI-AVENTIS-2011SA079944

PATIENT
  Age: 64 Year
  Sex: Male
  Weight: 91 kg

DRUGS (8)
  1. ZOLPIDEM [Concomitant]
     Dates: start: 20040101
  2. COREG [Concomitant]
     Dates: start: 20040101
  3. EFFEXOR XR [Concomitant]
     Dates: start: 20040101
  4. SEROQUEL [Suspect]
     Dates: start: 20040101
  5. DEXLANSOPRAZOLE [Concomitant]
     Dates: start: 20040101
  6. PLAVIX [Suspect]
     Route: 048
     Dates: start: 20080101
  7. LIPITOR [Concomitant]
     Dates: start: 20040101
  8. CLONAZEPAM [Concomitant]
     Dates: start: 20040101

REACTIONS (3)
  - HYPERTENSION [None]
  - WEIGHT INCREASED [None]
  - VERTIGO [None]
